FAERS Safety Report 15680461 (Version 1)
Quarter: 2018Q4

REPORT INFORMATION
  Report Type: Spontaneous
  Country: CA (occurrence: CA)
  Receive Date: 20181203
  Receipt Date: 20181203
  Transmission Date: 20190205
  Serious: Yes (Death)
  Sender: FDA-Public Use
  Company Number: CA-TEVA-2018-CA-981613

PATIENT
  Age: 95 Year
  Sex: Female

DRUGS (11)
  1. LAX-A-DAY [Concomitant]
  2. MS IR [Concomitant]
     Active Substance: MORPHINE SULFATE
  3. SEPTRA [Concomitant]
     Active Substance: SULFAMETHOXAZOLE\TRIMETHOPRIM
  4. TRAZODONE [Concomitant]
     Active Substance: TRAZODONE HYDROCHLORIDE
  5. VITAMIN D (1000 IU) [Concomitant]
  6. CITALOPRAM [Concomitant]
     Active Substance: CITALOPRAM HYDROBROMIDE
  7. ACT QUETIAPINE [Suspect]
     Active Substance: QUETIAPINE
     Indication: DEMENTIA
     Route: 048
  8. CLAVULIN [Concomitant]
     Active Substance: AMOXICILLIN\CLAVULANIC ACID
  9. LORAZEPAM. [Concomitant]
     Active Substance: LORAZEPAM
  10. RANITIDINE. [Concomitant]
     Active Substance: RANITIDINE
  11. SENNA [Concomitant]
     Active Substance: SENNA LEAF\SENNOSIDES\SENNOSIDES A AND B

REACTIONS (3)
  - Aphasia [Fatal]
  - Personality change [Fatal]
  - Erythema [Fatal]
